FAERS Safety Report 9266065 (Version 1)
Quarter: 2013Q2

REPORT INFORMATION
  Report Type: Spontaneous
  Country: US (occurrence: US)
  Receive Date: 20130501
  Receipt Date: 20130501
  Transmission Date: 20140414
  Serious: No
  Sender: FDA-Public Use
  Company Number: US-009507513-1304USA016676

PATIENT
  Age: 62 Year
  Sex: Male

DRUGS (3)
  1. VICTRELIS [Suspect]
     Indication: HEPATITIS C
     Dosage: 4 CAPSULES EVERY 8 HOURS
     Route: 048
     Dates: start: 20121120, end: 20130419
  2. RIBASPHERE [Suspect]
  3. PEGASYS [Suspect]

REACTIONS (3)
  - Muscular weakness [Unknown]
  - Dizziness [Unknown]
  - Movement disorder [Unknown]
